FAERS Safety Report 18997635 (Version 2)
Quarter: 2021Q2

REPORT INFORMATION
  Report Type: Report from Study
  Country: TH (occurrence: TH)
  Receive Date: 20210311
  Receipt Date: 20210511
  Transmission Date: 20210717
  Serious: Yes (Hospitalization, Other)
  Sender: FDA-Public Use
  Company Number: TH-BAYER-2021-096893

PATIENT
  Age: 22 Year
  Sex: Female

DRUGS (2)
  1. CHLOROQUINE. [Suspect]
     Active Substance: CHLOROQUINE
     Indication: COVID-19
     Dosage: UNK
     Dates: start: 2020, end: 2020
  2. LOPINAVIR/RITONAVIR [Suspect]
     Active Substance: LOPINAVIR\RITONAVIR
     Indication: COVID-19
     Dosage: UNK
     Dates: start: 2020, end: 2020

REACTIONS (3)
  - Post inflammatory pigmentation change [Unknown]
  - Drug hypersensitivity [Recovered/Resolved]
  - Urticarial vasculitis [Recovered/Resolved with Sequelae]

NARRATIVE: CASE EVENT DATE: 2020
